FAERS Safety Report 7734100-5 (Version None)
Quarter: 2011Q3

REPORT INFORMATION
  Report Type: 
  Country: None (occurrence: None)
  Receive Date: 20110907
  Receipt Date: 20110831
  Transmission Date: 20111222
  Serious: Yes (Other)
  Sender: FDA-Public Use
  Company Number: BR-PFIZER INC-2011205669

PATIENT
  Age: 63 Year
  Sex: Male
  Weight: 77 kg

DRUGS (20)
  1. BROMOPRIDE [Concomitant]
     Dosage: 10 MG, 3X/DAY
     Route: 048
     Dates: start: 20101129
  2. TRAMADOL [Concomitant]
     Dosage: 50 MG, 3X/DAY, EVERY 8 HOURS
     Route: 048
     Dates: start: 20100924
  3. DIPYRONE TAB [Concomitant]
     Dosage: 30 DROPS, AS NEEDED, EVERY 4 HOURS
     Route: 048
     Dates: start: 20100108, end: 20100127
  4. SUTENT [Suspect]
     Dosage: 50 MG, 1X/DAY
     Route: 048
     Dates: start: 20100513
  5. TRAMADOL [Concomitant]
     Dosage: 50 MG, AS NEEDED, EVERY 8 HOURS
     Dates: start: 20100903, end: 20100923
  6. DIPYRONE TAB [Concomitant]
     Dosage: 40 DROPS, 4X/DAY, EVERY 6 HOURS
     Route: 048
     Dates: start: 20100510, end: 20100902
  7. MINERAL OIL [Concomitant]
     Dosage: 1 MEASURE (UNSPECIFIED), AS NEEDED, EVERY 8 HOURS
     Route: 048
     Dates: start: 20100903, end: 20100923
  8. AMITRIPTYLINE [Concomitant]
     Dosage: 25 MG, 1X/DAY, AT NIGHT
     Dates: start: 20100318, end: 20100510
  9. DIPYRONE TAB [Concomitant]
     Dosage: 40 DROPS, AS NEEDED, EVERY 6 HOURS
     Route: 048
     Dates: start: 20100903, end: 20100923
  10. LEVOTHYROXINE SODIUM [Concomitant]
     Dosage: 25 MG, 1X/DAY, AT FASTING
     Route: 048
     Dates: start: 20100903
  11. DEXAMETHASONE [Interacting]
     Dosage: 1 TEA SPOON, EVERY 12 HOURS
     Route: 061
     Dates: start: 20101021, end: 20101121
  12. DIPYRONE TAB [Concomitant]
     Dosage: 40 DROPS, AS NEEDED, EVERY 6 HOURS
     Route: 048
     Dates: start: 20100127, end: 20100510
  13. MINERAL OIL [Concomitant]
     Dosage: 1 MEASURE (UNSPECIFIED) EVERY 8 HOURS
     Route: 048
     Dates: start: 20100924
  14. TRAMADOL [Concomitant]
     Dosage: 50 MG, 4X/DAY, EVERY 6 HOURS
     Route: 048
     Dates: start: 20100127, end: 20100902
  15. AMITRIPTYLINE [Concomitant]
     Dosage: 25 MG, 1X/DAY, AT NIGHT
     Dates: start: 20101129, end: 20101216
  16. BISACODYL [Concomitant]
     Dosage: 5 MG, 1X/DAY
     Route: 048
     Dates: start: 20100726, end: 20101124
  17. DIPYRONE TAB [Concomitant]
     Dosage: 40 DROPS, EVERY 6 HOURS
     Route: 048
     Dates: start: 20100924
  18. TRAMADOL [Concomitant]
     Dosage: 50 MG, 3X/DAY, EVERY 8 HOURS
     Route: 048
     Dates: start: 20100108, end: 20100127
  19. AMITRIPTYLINE [Concomitant]
     Dosage: 50 MG, 1X/DAY, AT NIGHT
     Route: 048
     Dates: start: 20100510, end: 20101128
  20. MINERAL OIL [Concomitant]
     Dosage: 1 MEASURE (UNSPECIFIED) EVERY 8 HOURS
     Route: 048
     Dates: start: 20100726, end: 20100902

REACTIONS (7)
  - SKIN DISCOLOURATION [None]
  - FATIGUE [None]
  - DRUG INTERACTION [None]
  - THROMBOCYTOPENIA [None]
  - RASH MACULAR [None]
  - SKIN ULCER [None]
  - SKIN LESION [None]
